FAERS Safety Report 25933178 (Version 1)
Quarter: 2025Q4

REPORT INFORMATION
  Report Type: Spontaneous
  Country: US (occurrence: US)
  Receive Date: 20251017
  Receipt Date: 20251017
  Transmission Date: 20260118
  Serious: Yes (Hospitalization)
  Sender: MERCK SHARP & DOHME LLC
  Company Number: US-009507513-2339763

PATIENT
  Sex: Female

DRUGS (8)
  1. LENVATINIB MESYLATE [Suspect]
     Active Substance: LENVATINIB MESYLATE
     Indication: Renal cancer
     Route: 048
  2. PEMBROLIZUMAB [Suspect]
     Active Substance: PEMBROLIZUMAB
     Indication: Renal cancer
     Route: 065
  3. VILAZOOONE HCL [Concomitant]
     Dosage: 20 MG TABLET
  4. BUPRENORPHINE-NALOXONE, ADDERALL [Concomitant]
     Dosage: 30 MG TABLET
  5. LEVOTHYROXINE SODIUM [Concomitant]
     Active Substance: LEVOTHYROXINE SODIUM
     Dosage: 150 MCG TABLET
  6. MAGNESIUM [Concomitant]
     Active Substance: MAGNESIUM
     Dosage: 300 MG CAPSULE
  7. FISH OIL [Concomitant]
     Active Substance: FISH OIL
     Dosage: 1000 MG CAPSULE
  8. VITAMINS [Concomitant]
     Active Substance: VITAMINS

REACTIONS (2)
  - Hospitalisation [Unknown]
  - Haemorrhage [Recovering/Resolving]
